FAERS Safety Report 4822058-8 (Version None)
Quarter: 2005Q4

REPORT INFORMATION
  Report Type: 
  Country: None (occurrence: None)
  Receive Date: 20051102
  Receipt Date: 20051026
  Transmission Date: 20060501
  Serious: Yes (Life-Threatening, Hospitalization)
  Sender: FDA-Public Use
  Company Number: DE_051017240

PATIENT
  Age: 12 Year
  Sex: Male

DRUGS (3)
  1. STRATTERA [Suspect]
     Indication: ATTENTION DEFICIT/HYPERACTIVITY DISORDER
     Dosage: 40 MG/1 DAY
     Dates: start: 20050707, end: 20051006
  2. STRATTERA [Suspect]
     Indication: DISTURBANCE IN SOCIAL BEHAVIOUR
     Dosage: 40 MG/1 DAY
     Dates: start: 20050707, end: 20051006
  3. STRATTERA [Suspect]
     Indication: LEARNING DISABILITY
     Dosage: 40 MG/1 DAY
     Dates: start: 20050707, end: 20051006

REACTIONS (4)
  - AGGRESSION [None]
  - BIPOLAR I DISORDER [None]
  - PERSONALITY CHANGE [None]
  - SUICIDAL IDEATION [None]
